FAERS Safety Report 8890809 (Version 1)
Quarter: 2012Q4

REPORT INFORMATION
  Report Type: 
  Country: US (occurrence: US)
  Receive Date: 20121106
  Receipt Date: 20121106
  Transmission Date: 20130627
  Serious: Yes (Other)
  Sender: FDA-Public Use
  Company Number: CHPA2012US023070

PATIENT
  Age: 85 Year
  Sex: Female

DRUGS (2)
  1. VOLTAREN GEL [Suspect]
     Indication: ARTHRITIS
     Dosage: UNK, 2 times per day
     Route: 061
  2. DRUG THERAPY NOS [Concomitant]

REACTIONS (3)
  - Atrial fibrillation [Not Recovered/Not Resolved]
  - Dry skin [Not Recovered/Not Resolved]
  - Drug administered at inappropriate site [Unknown]
